FAERS Safety Report 7216299-2 (Version None)
Quarter: 2011Q1

REPORT INFORMATION
  Report Type: 
  Country: None (occurrence: None)
  Receive Date: 20110107
  Receipt Date: 20101230
  Transmission Date: 20110831
  Serious: Yes (Other)
  Sender: FDA-Public Use
  Company Number: US-JNJFOC-20101001826

PATIENT
  Sex: Female

DRUGS (7)
  1. STELARA [Suspect]
     Indication: PSORIASIS
     Route: 058
  2. PLAVIX [Concomitant]
  3. STELARA [Suspect]
     Route: 058
  4. ASPIRIN [Concomitant]
  5. STELARA [Suspect]
     Route: 058
  6. STELARA [Suspect]
     Route: 058
  7. HYDROCHLOROTHIAZIDE [Concomitant]

REACTIONS (4)
  - INFLUENZA [None]
  - ERYTHEMA MULTIFORME [None]
  - OROPHARYNGEAL PAIN [None]
  - RASH PRURITIC [None]
